FAERS Safety Report 7013575-3 (Version None)
Quarter: 2010Q3

REPORT INFORMATION
  Report Type: 
  Country: None (occurrence: None)
  Receive Date: 20100924
  Receipt Date: 20100916
  Transmission Date: 20110219
  Serious: Yes (Hospitalization)
  Sender: FDA-Public Use
  Company Number: US-AMGEN-KDC438803

PATIENT
  Age: 55 Year
  Sex: Male
  Weight: 73.6 kg

DRUGS (3)
  1. PANITUMUMAB [Suspect]
     Indication: PANCREATIC CARCINOMA
     Dates: start: 20100617
  2. TARCEVA [Suspect]
     Route: 048
     Dates: start: 20100617
  3. GEMZAR [Suspect]
     Dates: start: 20100617

REACTIONS (2)
  - DIARRHOEA [None]
  - GASTROINTESTINAL INFECTION [None]
